FAERS Safety Report 7886557-7 (Version None)
Quarter: 2011Q4

REPORT INFORMATION
  Report Type: 
  Country: None (occurrence: None)
  Receive Date: 20111102
  Receipt Date: 20110707
  Transmission Date: 20120403
  Serious: No
  Sender: FDA-Public Use
  Company Number: US-AMGEN-KDL437319

PATIENT
  Age: 48 Year
  Sex: Female

DRUGS (1)
  1. ENBREL [Suspect]
     Indication: RHEUMATOID ARTHRITIS
     Dosage: 50 MG, QWK
     Route: 058
     Dates: start: 20080901

REACTIONS (7)
  - URINARY TRACT INFECTION [None]
  - SINUSITIS [None]
  - RHEUMATOID ARTHRITIS [None]
  - CHOLECYSTECTOMY [None]
  - RHEUMATOID NODULE [None]
  - HERPES ZOSTER [None]
  - H1N1 INFLUENZA [None]
